FAERS Safety Report 5804002-X (Version None)
Quarter: 2008Q3

REPORT INFORMATION
  Report Type: 
  Country: None (occurrence: None)
  Receive Date: 20080703
  Receipt Date: 20080619
  Transmission Date: 20090109
  Serious: Yes (Hospitalization)
  Sender: FDA-Public Use
  Company Number: 2008BI012571

PATIENT
  Age: 58 Year
  Sex: Female
  Weight: 125.6464 kg

DRUGS (20)
  1. TYSABRI [Suspect]
     Indication: MULTIPLE SCLEROSIS
     Dosage: 300 MG; QM; IV
     Route: 042
     Dates: start: 20070621, end: 20080414
  2. TIZANIDINE HCL [Concomitant]
  3. HYDROCODONE BITARTRATE [Concomitant]
  4. ACETAMINOPHEN [Concomitant]
  5. AMOXICILLIN -POT [Concomitant]
  6. CLAVULANATE POTASSIUM [Concomitant]
  7. ALLOPURINOL [Concomitant]
  8. COZAAR [Concomitant]
  9. HUMULIN R 100 [Concomitant]
  10. HUMULIN N 100 [Concomitant]
  11. AMANTADINE HCL [Concomitant]
  12. ATENOLOL [Concomitant]
  13. FUROSEMIDE [Concomitant]
  14. ALBUTEROL SULFATE [Concomitant]
  15. SYNTHROID [Concomitant]
  16. POTASSIUM CHLORIDE [Concomitant]
  17. PROCHLORPERAZINE MALEATE [Concomitant]
  18. BACLOFEN [Concomitant]
  19. PRAVASTATIN SODIUM [Concomitant]
  20. NITROGLYCERIN [Concomitant]

REACTIONS (10)
  - ATRIOVENTRICULAR BLOCK FIRST DEGREE [None]
  - BRAIN NATRIURETIC PEPTIDE INCREASED [None]
  - DIABETIC NEPHROPATHY [None]
  - DYSPNOEA EXERTIONAL [None]
  - HAEMATOCRIT DECREASED [None]
  - HAEMOGLOBIN DECREASED [None]
  - OEDEMA PERIPHERAL [None]
  - RENAL FAILURE ACUTE [None]
  - SINUS BRADYCARDIA [None]
  - TYPE 2 DIABETES MELLITUS [None]
